FAERS Safety Report 25257077 (Version 1)
Quarter: 2025Q2

REPORT INFORMATION
  Report Type: Spontaneous
  Country: EG (occurrence: EG)
  Receive Date: 20250430
  Receipt Date: 20250430
  Transmission Date: 20250717
  Serious: Yes (Hospitalization)
  Sender: PFIZER
  Company Number: EG-PFIZER INC-PV202500051107

PATIENT
  Age: 65 Year
  Sex: Female

DRUGS (4)
  1. CLINDAMYCIN [Suspect]
     Active Substance: CLINDAMYCIN
     Indication: Toothache
     Dosage: 300 MG, 2X/DAY
     Route: 048
     Dates: start: 20250324, end: 20250405
  2. MELOXICAM [Suspect]
     Active Substance: MELOXICAM
     Indication: Toothache
     Dosage: 15 MG, 2X/DAY
     Route: 048
     Dates: start: 20250324, end: 20250405
  3. FAMOTIDINE [Concomitant]
     Active Substance: FAMOTIDINE
     Dosage: 40 MG, 2X/DAY
     Route: 048
  4. CARE DIPINE [Concomitant]
     Dosage: 20 MG, 1X/DAY
     Route: 048

REACTIONS (5)
  - Nephrotic syndrome [Recovering/Resolving]
  - Abdominal distension [Recovered/Resolved]
  - Constipation [Recovered/Resolved]
  - Oedema [Recovered/Resolved]
  - Blood creatinine increased [Recovering/Resolving]

NARRATIVE: CASE EVENT DATE: 20250405
